FAERS Safety Report 5772566-0 (Version None)
Quarter: 2008Q2

REPORT INFORMATION
  Report Type: 
  Country: None (occurrence: None)
  Receive Date: 20080613
  Receipt Date: 20080603
  Transmission Date: 20081010
  Serious: Yes (Hospitalization)
  Sender: FDA-Public Use
  Company Number: US-AMGEN-US285008

PATIENT
  Sex: Female

DRUGS (12)
  1. PROCRIT [Suspect]
     Indication: RENAL FAILURE CHRONIC
     Route: 065
  2. GLUCOTROL [Concomitant]
     Route: 065
  3. SYNTHROID [Concomitant]
     Route: 065
  4. LASIX [Concomitant]
     Route: 065
  5. K-DUR [Concomitant]
     Route: 065
  6. DIOVAN [Concomitant]
     Route: 065
  7. COLCHICINE [Concomitant]
     Route: 065
  8. NORVASC [Concomitant]
     Route: 065
  9. ZYLOPRIM [Concomitant]
     Route: 065
  10. COUMADIN [Concomitant]
     Route: 065
  11. DARVOCET-N 100 [Concomitant]
     Route: 065
  12. NEXIUM [Concomitant]
     Route: 065

REACTIONS (2)
  - HIP FRACTURE [None]
  - HOSPITALISATION [None]
